FAERS Safety Report 8567616-2 (Version None)
Quarter: 2012Q3

REPORT INFORMATION
  Report Type: 
  Country: None (occurrence: None)
  Receive Date: 20120803
  Receipt Date: 20120726
  Transmission Date: 20120928
  Serious: Yes (Hospitalization)
  Sender: FDA-Public Use
  Company Number: US-ELI_LILLY_AND_COMPANY-US201203007335

PATIENT
  Sex: Female

DRUGS (1)
  1. FORTEO [Suspect]
     Indication: OSTEOPOROSIS
     Dosage: 20 U, QD
     Route: 065

REACTIONS (12)
  - CONFUSIONAL STATE [None]
  - ELECTROLYTE DEPLETION [None]
  - DISORIENTATION [None]
  - CYSTITIS [None]
  - DIARRHOEA [None]
  - CELLULITIS [None]
  - DEHYDRATION [None]
  - GALLBLADDER DISORDER [None]
  - FEELING ABNORMAL [None]
  - INSOMNIA [None]
  - CHOLECYSTECTOMY [None]
  - ABDOMINAL PAIN [None]
